FAERS Safety Report 18565646 (Version 2)
Quarter: 2021Q1

REPORT INFORMATION
  Report Type: Spontaneous
  Country: DE (occurrence: DE)
  Receive Date: 20201201
  Receipt Date: 20210316
  Transmission Date: 20210419
  Serious: Yes (Life-Threatening, Hospitalization, Other)
  Sender: FDA-Public Use
  Company Number: DE-SEATTLE GENETICS-2020SGN05273

PATIENT
  Age: 50 Year
  Sex: Male
  Weight: 97 kg

DRUGS (1)
  1. ADCETRIS [Suspect]
     Active Substance: BRENTUXIMAB VEDOTIN
     Indication: HODGKIN^S DISEASE
     Dosage: 175 MILLIGRAM
     Route: 065
     Dates: start: 20201002

REACTIONS (4)
  - Liver disorder [Recovering/Resolving]
  - Fungal sepsis [Recovering/Resolving]
  - Hepatic pain [Recovering/Resolving]
  - Hepatic failure [Recovered/Resolved]

NARRATIVE: CASE EVENT DATE: 20201102
